FAERS Safety Report 9427735 (Version 1)
Quarter: 2013Q3

REPORT INFORMATION
  Report Type: Report from Study
  Country: US (occurrence: US)
  Receive Date: 20130730
  Receipt Date: 20130730
  Transmission Date: 20140515
  Serious: No
  Sender: FDA-Public Use
  Company Number: US-ABBOTT-12P-163-0970010-00

PATIENT
  Sex: Male
  Weight: 94.43 kg

DRUGS (4)
  1. NIASPAN (COATED) 500MG [Suspect]
     Indication: LOW DENSITY LIPOPROTEIN INCREASED
     Dosage: 500MG BEFORE GOING TO SLEEP AT NIGHT
     Dates: start: 20120503
  2. NIASPAN (COATED) 500MG [Suspect]
     Indication: ARTERIAL OCCLUSIVE DISEASE
     Dosage: 500MG BEFORE GOING TO SLEEP AT NIGHT
     Dates: start: 201206
  3. BAYER ASPIRIN [Concomitant]
     Indication: PRODUCT USED FOR UNKNOWN INDICATION
  4. METFORMIN [Concomitant]
     Indication: PRODUCT USED FOR UNKNOWN INDICATION

REACTIONS (2)
  - Hypersomnia [Not Recovered/Not Resolved]
  - Blood glucose increased [Not Recovered/Not Resolved]
